FAERS Safety Report 13274595 (Version 1)
Quarter: 2017Q1

REPORT INFORMATION
  Report Type: Report from Study
  Country: CA (occurrence: CA)
  Receive Date: 20170227
  Receipt Date: 20170227
  Transmission Date: 20170428
  Serious: Yes (Hospitalization)
  Sender: FDA-Public Use
  Company Number: CA-HLSUS-2017-CA-000064

PATIENT
  Age: 70 Year
  Sex: Female
  Weight: 62 kg

DRUGS (10)
  1. ACETYLSALICYLIC ACID [Concomitant]
     Active Substance: ASPIRIN
  2. CACO3 (CALCIUM CARBONATE) [Concomitant]
  3. VENOFER [Concomitant]
     Active Substance: IRON SUCROSE
  4. PROCYCLIDINE [Concomitant]
     Active Substance: PROCYCLIDINE
  5. REPAGLINIDE. [Concomitant]
     Active Substance: REPAGLINIDE
  6. CLOZARIL [Suspect]
     Active Substance: CLOZAPINE
     Dosage: 50 MG
     Route: 048
     Dates: start: 20160904, end: 20161220
  7. DARBEPOETIN ALFA [Concomitant]
     Active Substance: DARBEPOETIN ALFA
  8. VITAMIN D [Concomitant]
     Active Substance: CHOLECALCIFEROL
  9. ZOPICLONE [Concomitant]
     Active Substance: ZOPICLONE
  10. SEVELAMER [Concomitant]
     Active Substance: SEVELAMER

REACTIONS (3)
  - Drug interaction [Unknown]
  - Confusional state [Recovered/Resolved]
  - Decreased appetite [Recovered/Resolved]

NARRATIVE: CASE EVENT DATE: 201612
